FAERS Safety Report 5234819-4 (Version None)
Quarter: 2007Q1

REPORT INFORMATION
  Report Type: 
  Country: None (occurrence: None)
  Receive Date: 20070209
  Receipt Date: 20070130
  Transmission Date: 20070707
  Serious: Yes (Disabling)
  Sender: FDA-Public Use
  Company Number: FR-PFIZER INC-2006154861

PATIENT
  Sex: Male
  Weight: 72 kg

DRUGS (6)
  1. TAHOR [Suspect]
     Indication: STENT PLACEMENT
     Route: 048
     Dates: start: 20030501, end: 20060801
  2. TAHOR [Suspect]
     Indication: VASCULAR BYPASS GRAFT
  3. CORVASAL [Concomitant]
  4. PLAVIX [Concomitant]
  5. DILTIAZEM HYDROCHLORIDE [Concomitant]
  6. NISISCO [Concomitant]

REACTIONS (8)
  - BALANCE DISORDER [None]
  - BLOOD CHOLESTEROL DECREASED [None]
  - DIARRHOEA [None]
  - FATIGUE [None]
  - FEELING DRUNK [None]
  - MUSCULAR WEAKNESS [None]
  - MYALGIA [None]
  - VERTIGO [None]
